FAERS Safety Report 8295476 (Version 2)
Quarter: 2013Q1

REPORT INFORMATION
  Report Type: Report from Study
  Country: DE (occurrence: DE)
  Receive Date: 20111216
  Receipt Date: 20130312
  Transmission Date: 20140127
  Serious: Yes (Other)
  Sender: FDA-Public Use
  Company Number: DE-ACTELION-A-CH2010-39152

PATIENT
  Age: 14 Year
  Sex: Female
  Weight: 35 kg

DRUGS (7)
  1. ZAVESCA [Suspect]
     Indication: NIEMANN-PICK DISEASE
     Dosage: 200 MG, TID
     Route: 048
     Dates: start: 20080901, end: 201007
  2. ZAVESCA [Suspect]
     Dosage: 100 MG, TID
     Route: 048
     Dates: start: 201007
  3. ZAVESCA [Suspect]
     Dosage: UNK
     Route: 048
  4. ZAVESCA [Suspect]
     Dosage: 200 MG, BID
     Route: 048
  5. LEVETIRACETAM [Concomitant]
  6. ETHOSUXIMIDE [Concomitant]
  7. CLOMIPRAMIN [Concomitant]

REACTIONS (4)
  - Growth retardation [Unknown]
  - Weight decreased [Recovering/Resolving]
  - Diarrhoea [Recovering/Resolving]
  - Thrombocytopenia [Unknown]
